FAERS Safety Report 5228096-8 (Version None)
Quarter: 2007Q1

REPORT INFORMATION
  Report Type: 
  Country: None (occurrence: None)
  Receive Date: 20070130
  Receipt Date: 20070116
  Transmission Date: 20070707
  Serious: Yes (Life-Threatening, Hospitalization, Disabling, Other)
  Sender: FDA-Public Use
  Company Number: 2007RR-05402

PATIENT
  Age: 69 Year
  Sex: Female

DRUGS (9)
  1. ATORVASTATIN (ATORVASTATIN) UNKNOWN [Suspect]
     Dosage: 80 MG, QD, ORAL
     Route: 048
     Dates: start: 20040619, end: 20060120
  2. CLARITHROMYCIN [Suspect]
  3. ASPIRIN [Concomitant]
  4. BISOPROLOL (BISOPROLOL FUMARATE) UNKNOWN [Concomitant]
  5. LANSOPRAZOLE [Concomitant]
  6. NICORANDIL [Concomitant]
  7. PENICILLIN V [Concomitant]
  8. PLAVIX [Concomitant]
  9. RAMIPRIL [Concomitant]

REACTIONS (9)
  - ABASIA [None]
  - DRUG INTERACTION [None]
  - INFLUENZA LIKE ILLNESS [None]
  - LIVER FUNCTION TEST ABNORMAL [None]
  - LOWER RESPIRATORY TRACT INFECTION [None]
  - MYOCARDIAL INFARCTION [None]
  - RENAL FAILURE ACUTE [None]
  - RHABDOMYOLYSIS [None]
  - VENTRICULAR DYSFUNCTION [None]
